FAERS Safety Report 25266988 (Version 2)
Quarter: 2025Q2

REPORT INFORMATION
  Report Type: Spontaneous
  Country: CA (occurrence: CA)
  Receive Date: 20250505
  Receipt Date: 20250505
  Transmission Date: 20250717
  Serious: Yes (Death, Hospitalization, Other)
  Sender: Kenvue
  Company Number: CA-KENVUE-20250409580

PATIENT

DRUGS (2)
  1. IBUPROFEN [Suspect]
     Active Substance: IBUPROFEN
     Indication: Patent ductus arteriosus
     Route: 048
  2. IBUPROFEN [Suspect]
     Active Substance: IBUPROFEN
     Route: 048

REACTIONS (9)
  - Intraventricular haemorrhage [Fatal]
  - Bronchopulmonary dysplasia [Fatal]
  - Necrotising colitis [Fatal]
  - Intestinal perforation [Fatal]
  - Blood creatinine increased [Fatal]
  - Oliguria [Fatal]
  - Neurodevelopmental disorder [Fatal]
  - Periventricular leukomalacia [Fatal]
  - Off label use [Fatal]
